FAERS Safety Report 17132749 (Version 1)
Quarter: 2019Q4

REPORT INFORMATION
  Report Type: Spontaneous
  Country: CZ (occurrence: CZ)
  Receive Date: 20191210
  Receipt Date: 20191210
  Transmission Date: 20200122
  Serious: Yes (Other)
  Sender: FDA-Public Use
  Company Number: CZ-TEVA-2019-CZ-1147728

PATIENT
  Age: 3 Year
  Sex: Female
  Weight: 15 kg

DRUGS (6)
  1. ECOBEC [Suspect]
     Active Substance: BECLOMETHASONE DIPROPIONATE
     Indication: WHEEZING
  2. VENTOLIN [Concomitant]
     Active Substance: ALBUTEROL SULFATE
     Dosage: 6 DOSAGE FORMS
  3. ERDOMED [Concomitant]
     Active Substance: ERDOSTEINE
     Dosage: 2.5 MG
  4. AERIUS [Concomitant]
     Dosage: 2.5 MG
  5. ECOBEC [Suspect]
     Active Substance: BECLOMETHASONE DIPROPIONATE
     Indication: DYSPNOEA
     Dosage: 2X1 IN THE MORNING AND IN THE EVENING
     Route: 065
  6. ECOBEC [Suspect]
     Active Substance: BECLOMETHASONE DIPROPIONATE
     Indication: ASTHMA

REACTIONS (4)
  - Irritability [Recovered/Resolved]
  - Crying [Recovered/Resolved]
  - Negativism [Recovered/Resolved]
  - Depression [Recovered/Resolved]
